FAERS Safety Report 20550766 (Version 1)
Quarter: 2022Q1

REPORT INFORMATION
  Report Type: Report from Study
  Country: CA (occurrence: CA)
  Receive Date: 20220304
  Receipt Date: 20220304
  Transmission Date: 20220424
  Serious: Yes (Other)
  Sender: FDA-Public Use
  Company Number: CA-ABBVIE-22K-028-4299189-00

PATIENT
  Sex: Female

DRUGS (1)
  1. HUMIRA [Suspect]
     Active Substance: ADALIMUMAB
     Indication: Psoriatic arthropathy
     Route: 058
     Dates: start: 20190910

REACTIONS (4)
  - Intervertebral disc disorder [Unknown]
  - Osteoarthritis [Unknown]
  - Psoriasis [Unknown]
  - Spinal pain [Unknown]

NARRATIVE: CASE EVENT DATE: 20200101
